FAERS Safety Report 18331022 (Version 2)
Quarter: 2021Q1

REPORT INFORMATION
  Report Type: Spontaneous
  Country: AU (occurrence: AU)
  Receive Date: 20200930
  Receipt Date: 20210310
  Transmission Date: 20210419
  Serious: Yes (Other)
  Sender: FDA-Public Use
  Company Number: AU-JNJFOC-20200920737

PATIENT
  Age: 67 Year
  Sex: Male

DRUGS (4)
  1. TRAMADOL HYDROCHLORIDE. [Suspect]
     Active Substance: TRAMADOL HYDROCHLORIDE
     Indication: PAIN
     Dosage: 350 MILLIGRAM, 1/DAY
     Route: 065
  2. MIRTANZA [Suspect]
     Active Substance: MIRTAZAPINE
     Indication: ANXIETY
     Dosage: 15 MILLIGRAM, 1/DAY
     Route: 065
     Dates: start: 20200729
  3. MIRTANZA [Suspect]
     Active Substance: MIRTAZAPINE
     Indication: DEPRESSION
     Dosage: 15 MILLIGRAM, 2/DAY
     Route: 065
     Dates: start: 20200902
  4. TRAMADOL HYDROCHLORIDE. [Suspect]
     Active Substance: TRAMADOL HYDROCHLORIDE
     Dosage: 250 MILLIGRAM, 1/DAY
     Route: 065

REACTIONS (7)
  - Optic nerve neoplasm [Unknown]
  - Vision blurred [Unknown]
  - Anxiety [Unknown]
  - Depression [Unknown]
  - Irritability [Unknown]
  - Head discomfort [Unknown]
  - Off label use [Unknown]

NARRATIVE: CASE EVENT DATE: 20200622
